FAERS Safety Report 9111552 (Version 1)
Quarter: 2013Q1

REPORT INFORMATION
  Report Type: Spontaneous
  Country: US (occurrence: US)
  Receive Date: 20130219
  Receipt Date: 20130219
  Transmission Date: 20140127
  Serious: No
  Sender: FDA-Public Use
  Company Number: US-BRISTOL-MYERS SQUIBB COMPANY-16552127

PATIENT
  Age: 63 Year
  Sex: Female
  Weight: 92.97 kg

DRUGS (11)
  1. ORENCIA [Suspect]
     Indication: RHEUMATOID ARTHRITIS
     Dosage: LAST INF:23APR2012
     Route: 042
  2. FENTANYL PATCH [Concomitant]
     Indication: PAIN
  3. PERCOCET [Concomitant]
     Indication: PAIN
     Dosage: 1DF: 1-0/650MG
  4. DIAZEPAM [Concomitant]
  5. LYRICA [Concomitant]
  6. DICLOFENAC SODIUM [Concomitant]
  7. AMBIEN [Concomitant]
     Dosage: AT BEDTIME
  8. CYMBALTA [Concomitant]
  9. CYCLOBENZAPRINE [Concomitant]
  10. VITAMIN D [Concomitant]
     Dosage: 1DF:50,000UNITS, 2000MG/DAY
     Route: 048
  11. IRON [Concomitant]

REACTIONS (2)
  - Drug ineffective [Unknown]
  - Fatigue [Unknown]
